FAERS Safety Report 6435136-7 (Version None)
Quarter: 2009Q4

REPORT INFORMATION
  Report Type: 
  Country: None (occurrence: None)
  Receive Date: 20091110
  Receipt Date: 20091029
  Transmission Date: 20100525
  Serious: Yes (Death)
  Sender: FDA-Public Use
  Company Number: JP-WATSON-2009-09256

PATIENT

DRUGS (2)
  1. FLUOROURACIL [Suspect]
     Indication: DRUG USE FOR UNKNOWN INDICATION
     Dosage: UNK
  2. FLUOROURACIL [Suspect]
     Dosage: 2400 MG/M2, 46H CONTINUOUS
     Route: 042

REACTIONS (1)
  - HYPERAMMONAEMIA [None]
